FAERS Safety Report 6731734-1 (Version None)
Quarter: 2010Q2

REPORT INFORMATION
  Report Type: 
  Country: None (occurrence: None)
  Receive Date: 20100514
  Receipt Date: 20100430
  Transmission Date: 20101027
  Serious: Yes (Hospitalization)
  Sender: FDA-Public Use
  Company Number: 011220

PATIENT
  Sex: Male

DRUGS (3)
  1. CIMZIA [Suspect]
     Indication: CROHN'S DISEASE
     Dosage: SUBCUTANEOUS
     Route: 058
     Dates: start: 20100311
  2. METRONIDAZOLE [Concomitant]
  3. APO-CIPROFLOX [Concomitant]

REACTIONS (3)
  - ABDOMINAL ABSCESS [None]
  - DEVICE RELATED INFECTION [None]
  - SMALL INTESTINAL OBSTRUCTION [None]
